FAERS Safety Report 4474488-4 (Version None)
Quarter: 2004Q4

REPORT INFORMATION
  Report Type: 
  Country: None (occurrence: None)
  Receive Date: 20041014
  Receipt Date: 20041006
  Transmission Date: 20050328
  Serious: Yes (Life-Threatening)
  Sender: FDA-Public Use
  Company Number: JP-GLAXOSMITHKLINE-B0347548A

PATIENT
  Age: 52 Year
  Sex: Male

DRUGS (1)
  1. ZEFIX [Suspect]
     Indication: HEPATITIS B
     Dosage: 100MG PER DAY
     Route: 048
     Dates: start: 20040918, end: 20040926

REACTIONS (1)
  - DISSEMINATED INTRAVASCULAR COAGULATION [None]
